FAERS Safety Report 4633291-2 (Version None)
Quarter: 2005Q2

REPORT INFORMATION
  Report Type: 
  Country: None (occurrence: None)
  Receive Date: 20050408
  Receipt Date: 20050329
  Transmission Date: 20051028
  Serious: Yes (Hospitalization)
  Sender: FDA-Public Use
  Company Number: 2005CG00636

PATIENT
  Age: 82 Year
  Sex: Female

DRUGS (6)
  1. ATACAND [Suspect]
     Dosage: 8 MG QD PO
     Route: 048
     Dates: end: 20050221
  2. NOCTRAN 10 [Suspect]
     Dosage: 10 + 0.75 + 7.5 MG QD
     Dates: end: 20050215
  3. LIPANTHYL   FOURNIER [Suspect]
     Dosage: 160 MG QD PO
     Route: 048
  4. EUPANTOL [Suspect]
     Dosage: 20 MG QD PO
     Route: 048
  5. AMLOR [Suspect]
  6. NEXEN [Suspect]
     Dosage: 150 MG QD PO
     Route: 048

REACTIONS (14)
  - ANAEMIA [None]
  - ARTHRALGIA [None]
  - ASTHENIA [None]
  - BETA 2 MICROGLOBULIN INCREASED [None]
  - BLOOD CREATINE ABNORMAL [None]
  - C-REACTIVE PROTEIN INCREASED [None]
  - HYPERPROTEINAEMIA [None]
  - IMMUNOGLOBULINS DECREASED [None]
  - INFLAMMATION [None]
  - PAIN IN EXTREMITY [None]
  - PYREXIA [None]
  - RED BLOOD CELL SEDIMENTATION RATE INCREASED [None]
  - SJOGREN'S SYNDROME [None]
  - SYSTEMIC LUPUS ERYTHEMATOSUS [None]
